FAERS Safety Report 7137123-2 (Version None)
Quarter: 2010Q4

REPORT INFORMATION
  Report Type: 
  Country: None (occurrence: None)
  Receive Date: 20101119
  Receipt Date: 20101109
  Transmission Date: 20110411
  Serious: Yes (Other)
  Sender: FDA-Public Use
  Company Number: 2009SP033857

PATIENT
  Age: 63 Year
  Sex: Female

DRUGS (2)
  1. TEMODAL [Suspect]
     Indication: GLIOBLASTOMA MULTIFORME
     Dosage: 5040 MG; 6000 MG
  2. HYPERICUM PERFORATION (HYPERICUM PERFORATUM /01166801/) [Suspect]
     Indication: DEPRESSION
     Dosage: 900 MG;QD;

REACTIONS (10)
  - AMAUROSIS [None]
  - CSF PROTEIN INCREASED [None]
  - GENERAL PHYSICAL HEALTH DETERIORATION [None]
  - GLIOBLASTOMA MULTIFORME [None]
  - HALLUCINATION, VISUAL [None]
  - HEADACHE [None]
  - HEMIPLEGIA [None]
  - OPTIC NEUROPATHY [None]
  - RADIATION INJURY [None]
  - SELF-MEDICATION [None]
